FAERS Safety Report 10758025 (Version 1)
Quarter: 2015Q1

REPORT INFORMATION
  Report Type: Spontaneous
  Country: US (occurrence: None)
  Receive Date: 20150202
  Receipt Date: 20150202
  Transmission Date: 20150721
  Serious: No
  Sender: FDA-Public Use
  Company Number: None

PATIENT
  Age: 48 Year
  Sex: Female
  Weight: 68.04 kg

DRUGS (1)
  1. ESZOPICLONE. [Suspect]
     Active Substance: ESZOPICLONE
     Indication: INSOMNIA
     Dosage: 1 PILL AT BEDTIME TAKEN BY MOUTH
     Route: 048

REACTIONS (9)
  - Depression [None]
  - Nervousness [None]
  - Feeling abnormal [None]
  - Malaise [None]
  - Thinking abnormal [None]
  - Nausea [None]
  - Headache [None]
  - Hangover [None]
  - Product substitution issue [None]

NARRATIVE: CASE EVENT DATE: 20150130
